FAERS Safety Report 15049688 (Version 1)
Quarter: 2018Q2

REPORT INFORMATION
  Report Type: Spontaneous
  Country: US (occurrence: US)
  Receive Date: 20180622
  Receipt Date: 20180622
  Transmission Date: 20180711
  Serious: No
  Sender: FDA-Public Use
  Company Number: US-ADAMAS PHARMA, LLC-2018ADA00380

PATIENT
  Age: 81 Year
  Sex: Male

DRUGS (7)
  1. CARBIDOPA;LEVODOPA [Concomitant]
  2. GOCOVRI [Suspect]
     Active Substance: AMANTADINE
     Indication: DYSKINESIA
     Dosage: 137 MG, 1X/DAY
     Dates: start: 201802, end: 201802
  3. ALLOPURINOL. [Concomitant]
     Active Substance: ALLOPURINOL
  4. CLONAZEPAM. [Concomitant]
     Active Substance: CLONAZEPAM
  5. BISOPROLOL;HYDROCHLOROTHIAZIDE [Concomitant]
  6. GOCOVRI [Suspect]
     Active Substance: AMANTADINE
     Dosage: 137 MG, 1X/DAY AT BEDTIME
     Dates: start: 2018
  7. GOCOVRI [Suspect]
     Active Substance: AMANTADINE
     Dosage: 274 MG, 1X/DAY AT BEDTIME
     Dates: start: 201802, end: 2018

REACTIONS (3)
  - Confusional state [Recovered/Resolved]
  - Hallucination [Recovered/Resolved]
  - Sleep talking [Recovered/Resolved]

NARRATIVE: CASE EVENT DATE: 2018
